FAERS Safety Report 20744040 (Version 1)
Quarter: 2022Q2

REPORT INFORMATION
  Report Type: Other
  Country: CA (occurrence: None)
  Receive Date: 20220425
  Receipt Date: 20220425
  Transmission Date: 20220721
  Serious: Yes (Other)
  Sender: FDA-Public Use
  Company Number: CA-ROCHE-2168047

PATIENT
  Age: 47 Year
  Sex: Female
  Weight: 60 kg

DRUGS (4)
  1. RITUXAN [Suspect]
     Active Substance: RITUXIMAB
     Indication: Rheumatoid arthritis
     Route: 042
     Dates: start: 20180807
  2. FOLIC ACID [Concomitant]
     Active Substance: FOLIC ACID
     Route: 048
  3. METHOTREXATE [Concomitant]
     Active Substance: METHOTREXATE
  4. PREDNISONE [Concomitant]
     Active Substance: PREDNISONE

REACTIONS (3)
  - Infusion related reaction [Recovered/Resolved]
  - Infusion related reaction [Recovered/Resolved]
  - Osteoarthritis [Unknown]

NARRATIVE: CASE EVENT DATE: 20180807
